FAERS Safety Report 11551841 (Version 1)
Quarter: 2015Q3

REPORT INFORMATION
  Report Type: Spontaneous
  Country: US (occurrence: US)
  Receive Date: 20150903
  Receipt Date: 20150903
  Transmission Date: 20151125
  Serious: No
  Sender: FDA-Public Use
  Company Number: US-ELI_LILLY_AND_COMPANY-US201005004377

PATIENT
  Age: 50 Year
  Sex: Female

DRUGS (1)
  1. HUMALOG [Suspect]
     Active Substance: INSULIN LISPRO
     Indication: TYPE 1 DIABETES MELLITUS
     Dosage: UNK, AS NEEDED
     Dates: start: 1996

REACTIONS (6)
  - Thirst [Recovered/Resolved]
  - Decreased appetite [Recovered/Resolved]
  - Drug ineffective [Recovered/Resolved]
  - Abdominal pain upper [Recovered/Resolved]
  - Blood glucose increased [Recovered/Resolved]
  - Nausea [Recovered/Resolved]

NARRATIVE: CASE EVENT DATE: 20100510
